FAERS Safety Report 18821713 (Version 1)
Quarter: 2021Q1

REPORT INFORMATION
  Report Type: Spontaneous
  Country: IT (occurrence: IT)
  Receive Date: 20210201
  Receipt Date: 20210201
  Transmission Date: 20210419
  Serious: Yes (Death)
  Sender: FDA-Public Use
  Company Number: IT-PFIZER INC-2021065360

PATIENT
  Age: 51 Year
  Sex: Male

DRUGS (10)
  1. LINEZOLID. [Suspect]
     Active Substance: LINEZOLID
     Indication: COVID-19
     Dosage: UNK
     Route: 065
  2. PREDNISOLONE. [Suspect]
     Active Substance: PREDNISOLONE
     Indication: COVID-19
     Dosage: UNK
     Route: 065
  3. LEVOFLOXACIN. [Suspect]
     Active Substance: LEVOFLOXACIN
     Indication: COVID-19
     Dosage: UNK
     Route: 065
  4. IMMUNOGLOBULIN HUMAN [Concomitant]
     Active Substance: HUMAN IMMUNOGLOBULIN G
     Indication: GOOD SYNDROME
     Dosage: UNK
     Route: 058
  5. OXYGEN. [Concomitant]
     Active Substance: OXYGEN
     Indication: HYPOXIA
     Dosage: UNK
  6. AZITHROMYCIN ANHYDROUS. [Suspect]
     Active Substance: AZITHROMYCIN ANHYDROUS
     Indication: COVID-19
     Dosage: 500 MG, DAILY
     Route: 065
  7. PIPERACILLIN AND TAZOBACTAM [Suspect]
     Active Substance: PIPERACILLIN SODIUM\TAZOBACTAM SODIUM
     Indication: COVID-19
     Dosage: UNK
     Route: 065
  8. HUMAN IMMUNOGLOBULIN (IMMUNOGLOBULIN HUMAN NORMAL) [Suspect]
     Active Substance: HUMAN IMMUNOGLOBULIN G
     Indication: COVID-19
     Dosage: 30 G, SINGLE
     Route: 042
     Dates: start: 2020
  9. DEXAMETHASONE SODIUM PHOSPHATE. [Suspect]
     Active Substance: DEXAMETHASONE SODIUM PHOSPHATE
     Indication: COVID-19
     Dosage: 6 MG
     Route: 042
  10. ENOXAPARIN [Suspect]
     Active Substance: ENOXAPARIN
     Indication: COVID-19
     Dosage: 6000 IU, 1X/DAY
     Route: 065

REACTIONS (2)
  - Off label use [Fatal]
  - Drug ineffective for unapproved indication [Fatal]
